FAERS Safety Report 6368262-1 (Version None)
Quarter: 2009Q3

REPORT INFORMATION
  Report Type: 
  Country: None (occurrence: None)
  Receive Date: 20090922
  Receipt Date: 20090911
  Transmission Date: 20100115
  Serious: Yes (Hospitalization, Other)
  Sender: FDA-Public Use
  Company Number: US-ELI_LILLY_AND_COMPANY-US200909003526

PATIENT
  Sex: Female

DRUGS (6)
  1. FORTEO [Suspect]
     Dates: start: 20090401
  2. ENBREL [Concomitant]
  3. NORVASC [Concomitant]
  4. TRAMADOL HCL [Concomitant]
  5. HYDROCHLOROTHIAZIDE [Concomitant]
  6. VITAMINS [Concomitant]

REACTIONS (3)
  - ARTHROPATHY [None]
  - HOSPITALISATION [None]
  - PULMONARY THROMBOSIS [None]
